FAERS Safety Report 9476775 (Version 1)
Quarter: 2013Q3

REPORT INFORMATION
  Report Type: Spontaneous
  Country: US (occurrence: US)
  Receive Date: 20130826
  Receipt Date: 20130826
  Transmission Date: 20140515
  Serious: No
  Sender: FDA-Public Use
  Company Number: US-BRISTOL-MYERS SQUIBB COMPANY-19084367

PATIENT
  Age: 60 Year
  Sex: Male
  Weight: 83.9 kg

DRUGS (4)
  1. KENALOG-40 INJ [Suspect]
     Indication: ARTHRITIS
     Dates: start: 201304
  2. LIDOCAINE [Suspect]
     Indication: ARTHRITIS
     Dates: start: 201304
  3. FLOMAX [Concomitant]
  4. DICLOFENAC [Concomitant]

REACTIONS (1)
  - Urticaria [Recovered/Resolved]
